FAERS Safety Report 8909752 (Version 1)
Quarter: 2012Q4

REPORT INFORMATION
  Report Type: 
  Country: BR (occurrence: BR)
  Receive Date: 20121115
  Receipt Date: 20121115
  Transmission Date: 20130627
  Serious: Yes (Other)
  Sender: FDA-Public Use
  Company Number: BR-PFIZER INC-2012282592

PATIENT
  Age: 84 Year
  Sex: Female

DRUGS (2)
  1. XALATAN [Suspect]
     Indication: GLAUCOMA
     Dosage: 2 Gtt in each eye, 1x/day (total 6ug)
     Route: 047
     Dates: start: 2002, end: 2012
  2. XALATAN [Suspect]
     Indication: CATARACT

REACTIONS (3)
  - Cataract [Unknown]
  - Off label use [Recovered/Resolved]
  - Overdose [Recovered/Resolved]
